FAERS Safety Report 23446103 (Version 2)
Quarter: 2024Q1

REPORT INFORMATION
  Report Type: Spontaneous
  Country: JP (occurrence: JP)
  Receive Date: 20240126
  Receipt Date: 20240205
  Transmission Date: 20240410
  Serious: Yes (Other)
  Sender: FDA-Public Use
  Company Number: JP-GILEAD-2024-0658533

PATIENT
  Age: 82 Year
  Sex: Male
  Weight: 62.7 kg

DRUGS (6)
  1. VEKLURY [Suspect]
     Active Substance: REMDESIVIR
     Indication: COVID-19
     Dosage: 200 MG, QD
     Route: 041
     Dates: start: 20240115, end: 20240115
  2. SAMTASU [Concomitant]
     Indication: Cardiac failure congestive
     Dosage: 16 MG, QD
     Route: 041
     Dates: start: 20240115
  3. PIPERACILLIN SODIUM\TAZOBACTAM SODIUM [Concomitant]
     Active Substance: PIPERACILLIN SODIUM\TAZOBACTAM SODIUM
     Indication: Pneumonia
     Dosage: 2.25 G, QID
     Route: 041
     Dates: start: 20240111
  4. CARPERITIDE [Concomitant]
     Active Substance: CARPERITIDE
     Indication: Cardiac failure congestive
     Dosage: 2000 UG, QD
     Route: 041
     Dates: start: 20240111, end: 20240114
  5. NICORANDIL [Concomitant]
     Active Substance: NICORANDIL
     Indication: Myocardial ischaemia
     Dosage: 48 MG, BID
     Route: 041
     Dates: start: 20240111, end: 20240114
  6. HUMULIN R [Concomitant]
     Active Substance: INSULIN HUMAN
     Indication: Diabetes mellitus
     Dosage: UNK
     Dates: start: 20240111

REACTIONS (1)
  - Torsade de pointes [Recovered/Resolved]

NARRATIVE: CASE EVENT DATE: 20240115
